FAERS Safety Report 5193949-6 (Version None)
Quarter: 2006Q4

REPORT INFORMATION
  Report Type: 
  Country: None (occurrence: None)
  Receive Date: 20061228
  Receipt Date: 20060915
  Transmission Date: 20070319
  Serious: Yes (Disabling)
  Sender: FDA-Public Use
  Company Number: US-MERCK-0609USA03209

PATIENT
  Age: 36 Month
  Sex: Male

DRUGS (7)
  1. SINGULAIR [Suspect]
     Indication: ASTHMA
     Route: 048
     Dates: start: 20010101, end: 20050101
  2. SINGULAIR [Suspect]
     Route: 048
     Dates: start: 20010101, end: 20050101
  3. SINGULAIR [Suspect]
     Indication: ALLERGY PROPHYLAXIS
     Route: 048
     Dates: start: 20010101, end: 20050101
  4. SINGULAIR [Suspect]
     Route: 048
     Dates: start: 20010101, end: 20050101
  5. [THERAPY UNSPECIFIED] [Concomitant]
     Indication: ASTHMA
     Route: 065
  6. [THERAPY UNSPECIFIED] [Concomitant]
     Indication: ATTENTION DEFICIT/HYPERACTIVITY DISORDER
     Route: 065
  7. [THERAPY UNSPECIFIED] [Concomitant]
     Indication: HYPERSENSITIVITY
     Route: 065

REACTIONS (3)
  - NIGHTMARE [None]
  - PRESCRIBED OVERDOSE [None]
  - SLEEP DISORDER [None]
